FAERS Safety Report 19947449 (Version 1)
Quarter: 2021Q4

REPORT INFORMATION
  Report Type: Report from Study
  Country: CN (occurrence: CN)
  Receive Date: 20211012
  Receipt Date: 20211012
  Transmission Date: 20220304
  Serious: Yes (Death, Other)
  Sender: FDA-Public Use
  Company Number: CN-TAKEDA-2021TUS062696

PATIENT
  Age: 64 Year
  Sex: Male
  Weight: 75 kg

DRUGS (16)
  1. IXAZOMIB [Suspect]
     Active Substance: IXAZOMIB
     Indication: Plasma cell myeloma
     Dosage: UNK
     Route: 065
  2. OMEPRAZOLE MAGNESIUM [Concomitant]
     Active Substance: OMEPRAZOLE MAGNESIUM
     Indication: Prophylaxis
     Dosage: 20 MILLIGRAM, QD
     Route: 048
     Dates: start: 20210727, end: 20210806
  3. AMMONIUM GLYCYRRHIZATE\CYSTEINE [Concomitant]
     Active Substance: AMMONIUM GLYCYRRHIZATE\CYSTEINE
     Indication: Prophylaxis
     Dosage: 100 MILLILITER, QD
     Route: 042
     Dates: start: 20210727, end: 20210806
  4. VITAMINS [Concomitant]
     Active Substance: VITAMINS
     Indication: Vitamin supplementation
     Dosage: 5 MILLILITER, QD
     Route: 042
     Dates: start: 20210727, end: 20210806
  5. PIPERACILLIN SODIUM\TAZOBACTAM SODIUM [Concomitant]
     Active Substance: PIPERACILLIN SODIUM\TAZOBACTAM SODIUM
     Indication: Pneumonia
     Dosage: 4.5 GRAM
     Route: 042
     Dates: start: 20210728, end: 20210806
  6. TRAMADOL [Concomitant]
     Active Substance: TRAMADOL
     Indication: Chest pain
     Dosage: 0.1 GRAM, QD
     Route: 048
     Dates: start: 20210728, end: 20210730
  7. TRAMADOL [Concomitant]
     Active Substance: TRAMADOL
     Dosage: 0.1 GRAM, BID
     Route: 048
     Dates: start: 20210730, end: 20210806
  8. TROPISETRON [Concomitant]
     Active Substance: TROPISETRON
     Indication: Antiemetic supportive care
     Dosage: 4 MILLIGRAM, QD
     Route: 042
     Dates: start: 20210730, end: 20210801
  9. SODIUM BICARBONATE [Concomitant]
     Active Substance: SODIUM BICARBONATE
     Indication: Urine alkalinisation therapy
     Dosage: 125 MILLILITER, QD
     Route: 042
     Dates: start: 20210730, end: 20210731
  10. Caltrate 600+d [Concomitant]
     Indication: Osteoporosis
     Dosage: UNK UNK, QD
     Route: 048
     Dates: start: 20210730, end: 20210806
  11. ROCALTROL [Concomitant]
     Active Substance: CALCITRIOL
     Indication: Osteoporosis
     Dosage: 0.25 MICROGRAM, QD
     Route: 048
     Dates: start: 20210730, end: 20210806
  12. VORICONAZOLE [Concomitant]
     Active Substance: VORICONAZOLE
     Indication: Pneumonia
     Dosage: 200 MILLIGRAM
     Route: 042
     Dates: start: 20210803, end: 20210806
  13. LEVOFLOXACIN [Concomitant]
     Active Substance: LEVOFLOXACIN
     Indication: Pneumonia
     Dosage: 0.5 GRAM, QD
     Route: 042
     Dates: start: 20210804, end: 20210806
  14. CYCLOPHOSPHAMIDE [Concomitant]
     Active Substance: CYCLOPHOSPHAMIDE
     Indication: Plasma cell myeloma
     Dosage: 0.56 GRAM
     Route: 042
     Dates: start: 20210730, end: 20210730
  15. DEXAMETHASONE SODIUM PHOSPHATE [Concomitant]
     Active Substance: DEXAMETHASONE SODIUM PHOSPHATE
     Indication: Plasma cell myeloma
     Dosage: 30 MILLIGRAM
     Route: 042
     Dates: start: 20210730, end: 20210730
  16. POTASSIUM CHLORIDE [Concomitant]
     Active Substance: POTASSIUM CHLORIDE
     Indication: Dehydration
     Dosage: 6 MILLILITER
     Route: 042
     Dates: start: 20210730, end: 20210730

REACTIONS (3)
  - Plasma cell myeloma [Fatal]
  - Hypoproteinaemia [Not Recovered/Not Resolved]
  - Constipation [Not Recovered/Not Resolved]

NARRATIVE: CASE EVENT DATE: 20210802
